FAERS Safety Report 8329765-3 (Version None)
Quarter: 2012Q2

REPORT INFORMATION
  Report Type: 
  Country: None (occurrence: None)
  Receive Date: 20120502
  Receipt Date: 20120501
  Transmission Date: 20120825
  Serious: Yes (Other)
  Sender: FDA-Public Use
  Company Number: JP-PFIZER INC-2012094085

PATIENT
  Age: 10 Year
  Sex: Female

DRUGS (2)
  1. ZOLOFT [Suspect]
     Indication: OBSESSIVE THOUGHTS
     Dosage: 12.5 MG, DAILY
     Route: 048
     Dates: start: 20120402, end: 20120417
  2. ZOLOFT [Suspect]
     Indication: ANXIETY
     Dosage: 12.5 MG DAILY
     Route: 048
     Dates: start: 20110801, end: 20111201

REACTIONS (3)
  - OBSESSIVE THOUGHTS [None]
  - ANXIETY [None]
  - TONIC CONVULSION [None]
